FAERS Safety Report 4733082-8 (Version None)
Quarter: 2005Q3

REPORT INFORMATION
  Report Type: 
  Country: None (occurrence: None)
  Receive Date: 20050803
  Receipt Date: 20050725
  Transmission Date: 20060218
  Serious: Yes (Hospitalization)
  Sender: FDA-Public Use
  Company Number: PHBS2005GT10617

PATIENT
  Age: 37 Year
  Sex: Male

DRUGS (1)
  1. CATAFLAM [Suspect]
     Indication: PYREXIA
     Dosage: 1 DF, Q8H
     Route: 030
     Dates: start: 20050710, end: 20050711

REACTIONS (4)
  - DYSPNOEA [None]
  - RESPIRATORY DISTRESS [None]
  - STRIDOR [None]
  - TRACHEOSTOMY [None]
